FAERS Safety Report 5988562-4 (Version None)
Quarter: 2008Q4

REPORT INFORMATION
  Report Type: 
  Country: None (occurrence: None)
  Receive Date: 20081210
  Receipt Date: 20080927
  Transmission Date: 20090506
  Serious: No
  Sender: FDA-Public Use
  Company Number: US-BAYER-200814677BCC

PATIENT
  Age: 32 Year
  Sex: Female
  Weight: 59 kg

DRUGS (4)
  1. ALEVE [Suspect]
     Indication: DYSMENORRHOEA
     Dosage: AS USED: 440 MG  UNIT DOSE: 220 MG
     Route: 048
     Dates: start: 20080926
  2. ALEVE [Suspect]
     Dosage: AS USED: 440 MG  UNIT DOSE: 220 MG
     Route: 048
     Dates: start: 20080927
  3. LEXAPRO [Concomitant]
  4. CELEXA [Concomitant]

REACTIONS (1)
  - NO ADVERSE EVENT [None]
